FAERS Safety Report 7993903-2 (Version None)
Quarter: 2011Q4

REPORT INFORMATION
  Report Type: 
  Country: None (occurrence: None)
  Receive Date: 20111220
  Receipt Date: 20111207
  Transmission Date: 20120403
  Serious: Yes (Death)
  Sender: FDA-Public Use
  Company Number: CZ-RANBAXY-2011RR-51080

PATIENT
  Age: 81 Year
  Sex: Male

DRUGS (9)
  1. WARFARIN SODIUM [Suspect]
     Dosage: 1.5 MG/DAY
     Route: 065
  2. WARFARIN SODIUM [Suspect]
     Dosage: 1.5 MG/DAY
     Route: 065
  3. WARFARIN SODIUM [Suspect]
     Indication: ATRIAL FIBRILLATION
     Dosage: 3 MG/DAY
     Route: 065
  4. CIPROFLOXACIN [Suspect]
     Dosage: 200 MG, BID
     Route: 042
  5. WARFARIN SODIUM [Suspect]
     Dosage: 0 MG/DAY
     Route: 065
  6. CIPROFLOXACIN [Suspect]
     Indication: BRONCHITIS
     Dosage: 500 MG, BID
     Route: 048
  7. CIPROFLOXACIN [Suspect]
     Dosage: 400 MG, BID
  8. WARFARIN SODIUM [Suspect]
     Dosage: 3 MG/DAY
     Route: 065
  9. WARFARIN SODIUM [Suspect]
     Dosage: 3 MG/DAY
     Route: 065

REACTIONS (2)
  - DRUG INTERACTION [None]
  - GASTROINTESTINAL HAEMORRHAGE [None]
